FAERS Safety Report 25476611 (Version 1)
Quarter: 2025Q2

REPORT INFORMATION
  Report Type: Report from Study
  Country: US (occurrence: US)
  Receive Date: 20250625
  Receipt Date: 20250625
  Transmission Date: 20250716
  Serious: Yes (Hospitalization, Other)
  Sender: ABBVIE
  Company Number: US-ABBVIE-6338691

PATIENT
  Sex: Female

DRUGS (1)
  1. HUMIRA [Suspect]
     Active Substance: ADALIMUMAB
     Indication: Crohn^s disease
     Route: 058

REACTIONS (9)
  - Coma [Unknown]
  - Surgery [Unknown]
  - Ostomy bag placement [Unknown]
  - Pyrexia [Unknown]
  - Fatigue [Unknown]
  - Femur fracture [Unknown]
  - Hip fracture [Unknown]
  - Pain [Unknown]
  - Hospitalisation [Unknown]
